FAERS Safety Report 6297035-3 (Version None)
Quarter: 2009Q3

REPORT INFORMATION
  Report Type: 
  Country: None (occurrence: None)
  Receive Date: 20090804
  Receipt Date: 20090730
  Transmission Date: 20100115
  Serious: Yes (Life-Threatening, Hospitalization)
  Sender: FDA-Public Use
  Company Number: ES-GILEAD-E2B_00000362

PATIENT
  Age: 74 Year
  Sex: Male

DRUGS (6)
  1. VIREAD [Interacting]
     Indication: HEPATITIS B
     Route: 048
     Dates: start: 20081001, end: 20090312
  2. LOSARTAN POTASSIUM [Interacting]
     Indication: BLOOD PRESSURE INCREASED
     Route: 048
     Dates: start: 20040101, end: 20090312
  3. ZEFFIX [Suspect]
     Indication: HEPATITIS B
     Route: 048
     Dates: start: 20081001
  4. HIDROSALURETIL [Interacting]
     Indication: BLOOD PRESSURE INCREASED
     Route: 048
  5. OMEPRAZOL [Concomitant]
     Indication: GASTRITIS PROPHYLAXIS
     Route: 048
     Dates: start: 20080901, end: 20090301
  6. METFORMIN HCL [Concomitant]
     Indication: TYPE 2 DIABETES MELLITUS
     Route: 048

REACTIONS (3)
  - METABOLIC ACIDOSIS [None]
  - RENAL FAILURE ACUTE [None]
  - VOMITING [None]
